FAERS Safety Report 20924572 (Version 1)
Quarter: 2022Q2

REPORT INFORMATION
  Report Type: Spontaneous
  Country: CN (occurrence: CN)
  Receive Date: 20220607
  Receipt Date: 20220607
  Transmission Date: 20220720
  Serious: Yes (Other)
  Sender: FDA-Public Use
  Company Number: CN-PFIZER INC-202200773049

PATIENT
  Age: 63 Year
  Sex: Female

DRUGS (2)
  1. VORICONAZOLE [Suspect]
     Active Substance: VORICONAZOLE
     Indication: Bronchopulmonary aspergillosis
     Dosage: 200 MG, 2X/DAY (FIRST DAY)
     Route: 041
  2. VORICONAZOLE [Suspect]
     Active Substance: VORICONAZOLE
     Dosage: 100 MG, 2X/DAY
     Route: 041

REACTIONS (5)
  - Altered state of consciousness [Recovered/Resolved]
  - Drug level above therapeutic [Recovering/Resolving]
  - Hepatotoxicity [Recovering/Resolving]
  - Rash [Recovering/Resolving]
  - Vomiting [Recovered/Resolved]
